FAERS Safety Report 7693730-X (Version None)
Quarter: 2011Q3

REPORT INFORMATION
  Report Type: 
  Country: None (occurrence: None)
  Receive Date: 20110819
  Receipt Date: 20110810
  Transmission Date: 20111222
  Serious: Yes (Other)
  Sender: FDA-Public Use
  Company Number: DE-SANOFI-AVENTIS-2011SA024265

PATIENT

DRUGS (4)
  1. CAPECITABINE [Suspect]
     Dosage: GIVEN ON DAY 1 THROUGH 14, FOLLOWED BY A 1-WEEK REST PERIOD
     Route: 048
  2. CETUXIMAB [Suspect]
     Route: 042
  3. OXALIPLATIN [Suspect]
     Dosage: 120 MINUTE INTRAVENOUS  INFUSION ON DAY 1
     Route: 042
  4. CETUXIMAB [Suspect]
     Dosage: LOADING DOSE
     Route: 042

REACTIONS (14)
  - THROMBOCYTOPENIA [None]
  - NAIL DISORDER [None]
  - NEUROTOXICITY [None]
  - FATIGUE [None]
  - SKIN TOXICITY [None]
  - DIARRHOEA [None]
  - INFECTION [None]
  - VOMITING [None]
  - LEUKOPENIA [None]
  - NAUSEA [None]
  - PAIN [None]
  - PALMAR-PLANTAR ERYTHRODYSAESTHESIA SYNDROME [None]
  - CONSTIPATION [None]
  - NEUTROPENIA [None]
